FAERS Safety Report 21407035 (Version 3)
Quarter: 2022Q4

REPORT INFORMATION
  Report Type: Report from Study
  Country: US (occurrence: US)
  Receive Date: 20221004
  Receipt Date: 20221031
  Transmission Date: 20230113
  Serious: Yes (Hospitalization)
  Sender: FDA-Public Use
  Company Number: US-TAKEDA-2022TUS069925

PATIENT
  Sex: Female

DRUGS (3)
  1. MARIBAVIR [Suspect]
     Active Substance: MARIBAVIR
     Indication: Cytomegalovirus infection
     Dosage: UNK
     Route: 065
     Dates: start: 20220927
  2. MARIBAVIR [Suspect]
     Active Substance: MARIBAVIR
     Dosage: 400 MILLIGRAM, BID
     Route: 048
     Dates: start: 20220928
  3. MARIBAVIR [Suspect]
     Active Substance: MARIBAVIR
     Dosage: 2 DOSAGE FORM
     Route: 048
     Dates: start: 20221007

REACTIONS (2)
  - Hospitalisation [Unknown]
  - Taste disorder [Recovering/Resolving]
